FAERS Safety Report 4658635-7 (Version None)
Quarter: 2005Q2

REPORT INFORMATION
  Report Type: 
  Country: None (occurrence: None)
  Receive Date: 20050511
  Receipt Date: 20050504
  Transmission Date: 20051028
  Serious: Yes (Other)
  Sender: FDA-Public Use
  Company Number: NL-GLAXOSMITHKLINE-B0380448A

PATIENT

DRUGS (2)
  1. LAMOTRIGINE [Suspect]
  2. ALCOHOL [Suspect]

REACTIONS (2)
  - DRUG INTERACTION [None]
  - EPILEPSY [None]
